FAERS Safety Report 8959787 (Version 2)
Quarter: 2012Q4

REPORT INFORMATION
  Report Type: 
  Country: RO (occurrence: RO)
  Receive Date: 20121211
  Receipt Date: 20121214
  Transmission Date: 20130627
  Serious: No
  Sender: FDA-Public Use
  Company Number: RO-PFIZER INC-2012309861

PATIENT
  Age: 30 Year
  Sex: Female
  Weight: 70 kg

DRUGS (4)
  1. ZOLOFT [Suspect]
     Indication: DEPRESSION
     Dosage: 50 mg, 1x/day
     Route: 048
     Dates: start: 20121004, end: 20121113
  2. ZOLOFT [Suspect]
     Indication: ANXIETY
  3. ANXIAR [Concomitant]
     Dosage: 2 mg, 1x/day
     Route: 048
     Dates: start: 20121004
  4. IMOVANE [Concomitant]
     Dosage: 7.5 mg, 1x/day
     Route: 048
     Dates: start: 20121004

REACTIONS (3)
  - Psychomotor hyperactivity [Recovered/Resolved]
  - Nausea [Recovered/Resolved]
  - Vomiting [Recovered/Resolved]
